FAERS Safety Report 8601459-6 (Version None)
Quarter: 2012Q3

REPORT INFORMATION
  Report Type: 
  Country: None (occurrence: None)
  Receive Date: 20120817
  Receipt Date: 20120229
  Transmission Date: 20120928
  Serious: Yes (Hospitalization, Other)
  Sender: FDA-Public Use
  Company Number: US-BRISTOL-MYERS SQUIBB COMPANY-15978356

PATIENT
  Age: 54 Year
  Sex: Female

DRUGS (4)
  1. SPRYCEL [Suspect]
     Indication: ACUTE MYELOID LEUKAEMIA
     Dates: start: 20090501, end: 20111015
  2. RIFAMPICIN [Concomitant]
  3. PYRAZINAMIDE [Concomitant]
  4. ISONIAZID [Concomitant]

REACTIONS (7)
  - HEADACHE [None]
  - OEDEMA [None]
  - PULMONARY ARTERIAL HYPERTENSION [None]
  - PLEURAL EFFUSION [None]
  - GASTROINTESTINAL HAEMORRHAGE [None]
  - COLITIS [None]
  - HAEMOGLOBIN DECREASED [None]
